FAERS Safety Report 16395737 (Version 2)
Quarter: 2019Q2

REPORT INFORMATION
  Report Type: Report from Study
  Country: CA (occurrence: CA)
  Receive Date: 20190605
  Receipt Date: 20190627
  Transmission Date: 20190711
  Serious: Yes (Other)
  Sender: FDA-Public Use
  Company Number: CA-ELI_LILLY_AND_COMPANY-CA201905013738

PATIENT
  Sex: Female

DRUGS (1)
  1. IXEKIZUMAB [Suspect]
     Active Substance: IXEKIZUMAB
     Indication: PRODUCT USED FOR UNKNOWN INDICATION
     Dosage: 80 MG, 2/M (EVERY 2 WEEKS)
     Route: 058
     Dates: start: 20190517

REACTIONS (7)
  - Hypersensitivity [Recovered/Resolved]
  - Injection site reaction [Recovered/Resolved]
  - Injection site rash [Not Recovered/Not Resolved]
  - Injection site warmth [Not Recovered/Not Resolved]
  - Dyspnoea [Not Recovered/Not Resolved]
  - Injection site pain [Not Recovered/Not Resolved]
  - Otorrhoea [Not Recovered/Not Resolved]

NARRATIVE: CASE EVENT DATE: 20190522
